FAERS Safety Report 5346085-X (Version None)
Quarter: 2007Q2

REPORT INFORMATION
  Report Type: 
  Country: None (occurrence: None)
  Receive Date: 20070423
  Receipt Date: 20060922
  Transmission Date: 20071010
  Serious: Yes (Other)
  Sender: FDA-Public Use
  Company Number: WAES 0609USA05502

PATIENT
  Age: 16 Year
  Sex: Male
  Weight: 68.0396 kg

DRUGS (1)
  1. SINGULAIR [Suspect]
     Indication: ASTHMA
     Dosage: 10 MG/DAILY/PO
     Route: 048
     Dates: start: 20060510, end: 20060615

REACTIONS (1)
  - OTITIS MEDIA [None]
